FAERS Safety Report 8880085 (Version 1)
Quarter: 2012Q4

REPORT INFORMATION
  Report Type: 
  Country: US (occurrence: US)
  Receive Date: 20121031
  Receipt Date: 20121031
  Transmission Date: 20130627
  Serious: Yes (Other)
  Sender: FDA-Public Use
  Company Number: US-SANOFI-AVENTIS-2012SA077603

PATIENT
  Age: 85 Year
  Sex: Male
  Weight: 59 kg

DRUGS (2)
  1. PLAVIX [Suspect]
     Indication: CORONARY BYPASS
     Route: 048
     Dates: start: 2009, end: 2012
  2. CLOPIDOGREL BISULFATE [Suspect]
     Route: 065
     Dates: start: 2012

REACTIONS (2)
  - Macular degeneration [Not Recovered/Not Resolved]
  - Eye haemorrhage [Not Recovered/Not Resolved]
